FAERS Safety Report 7234596-1 (Version None)
Quarter: 2011Q1

REPORT INFORMATION
  Report Type: 
  Country: None (occurrence: None)
  Receive Date: 20110120
  Receipt Date: 20110110
  Transmission Date: 20110831
  Serious: Yes (Hospitalization)
  Sender: FDA-Public Use
  Company Number: US-BIOGENIDEC-2009BI035084

PATIENT
  Age: 54 Year
  Sex: Male
  Weight: 90 kg

DRUGS (4)
  1. DIAZEPAM [Concomitant]
     Indication: MULTIPLE SCLEROSIS
  2. AVONEX [Suspect]
     Indication: MULTIPLE SCLEROSIS
     Route: 030
     Dates: start: 20031121
  3. COUMADIN [Concomitant]
     Indication: MULTIPLE SCLEROSIS
  4. NIACIN [Concomitant]
     Indication: MULTIPLE SCLEROSIS

REACTIONS (15)
  - PAIN IN EXTREMITY [None]
  - DEPRESSED MOOD [None]
  - MOBILITY DECREASED [None]
  - INSOMNIA [None]
  - DEPRESSION [None]
  - CHOLELITHIASIS [None]
  - PULMONARY EMBOLISM [None]
  - EMOTIONAL DISTRESS [None]
  - INFLUENZA LIKE ILLNESS [None]
  - DRUG HYPERSENSITIVITY [None]
  - MULTIPLE SCLEROSIS [None]
  - PAIN [None]
  - DEEP VEIN THROMBOSIS [None]
  - OEDEMA PERIPHERAL [None]
  - GENERAL SYMPTOM [None]
